FAERS Safety Report 8256172-4 (Version None)
Quarter: 2012Q2

REPORT INFORMATION
  Report Type: 
  Country: None (occurrence: None)
  Receive Date: 20120403
  Receipt Date: 20120328
  Transmission Date: 20120825
  Serious: Yes (Other)
  Sender: FDA-Public Use
  Company Number: US-PFIZER INC-2012080144

PATIENT
  Sex: Male
  Weight: 86.168 kg

DRUGS (2)
  1. LYRICA [Suspect]
     Indication: NEUROPATHY PERIPHERAL
     Dosage: UNK
     Route: 048
  2. TOFRANIL [Concomitant]
     Dosage: 25MG THREE TIMES IN A DAY AND 50MG AT NIGHT
     Route: 048

REACTIONS (2)
  - HYPERTENSION [None]
  - FALL [None]
